FAERS Safety Report 14002202 (Version 1)
Quarter: 2017Q3

REPORT INFORMATION
  Report Type: Spontaneous
  Country: US (occurrence: US)
  Receive Date: 20170922
  Receipt Date: 20170922
  Transmission Date: 20171128
  Serious: No
  Sender: FDA-Public Use
  Company Number: US-MAYNE PHARMA-2017MYN000480

PATIENT

DRUGS (3)
  1. CARBIDOPA/LEVODOPA [Suspect]
     Active Substance: CARBIDOPA\LEVODOPA
     Dosage: (MYLAN) 1 DF, 4-5 TIMES A DAY
     Route: 048
     Dates: start: 2016
  2. CARBIDOPA/LEVODOPA [Suspect]
     Active Substance: CARBIDOPA\LEVODOPA
     Indication: TREMOR
     Dosage: 1 DF 4-5 TIMES A DAY
     Route: 048
     Dates: start: 2010
  3. CARBIDOPA/LEVODOPA [Suspect]
     Active Substance: CARBIDOPA\LEVODOPA
     Dosage: (PUREPAC) 1 DF, 4-5 TIMES A DAY
     Route: 048
     Dates: start: 201602

REACTIONS (3)
  - Thirst [Unknown]
  - Hypogeusia [Unknown]
  - Hyposmia [Recovered/Resolved]
